FAERS Safety Report 9254214 (Version 1)
Quarter: 2013Q2

REPORT INFORMATION
  Report Type: Spontaneous
  Country: TW (occurrence: TW)
  Receive Date: 20130425
  Receipt Date: 20130425
  Transmission Date: 20140414
  Serious: Yes (Other)
  Sender: FDA-Public Use
  Company Number: PHHY2013TW040022

PATIENT
  Age: 43 Year
  Sex: Male

DRUGS (1)
  1. IMATINIB [Suspect]
     Indication: CHRONIC MYELOID LEUKAEMIA
     Dosage: 400 MG, ONCE  DAILY

REACTIONS (2)
  - Hepatitis B [Unknown]
  - Fatigue [Recovered/Resolved]
